FAERS Safety Report 7128340-6 (Version None)
Quarter: 2010Q4

REPORT INFORMATION
  Report Type: 
  Country: None (occurrence: None)
  Receive Date: 20101130
  Receipt Date: 20101122
  Transmission Date: 20110411
  Serious: Yes (Life-Threatening, Hospitalization)
  Sender: FDA-Public Use
  Company Number: US-ROXANE LABORATORIES, INC.-2010-RO-01533RO

PATIENT
  Age: 74 Year
  Sex: Female

DRUGS (10)
  1. RISPERIDONE [Suspect]
     Indication: AGGRESSION
     Dosage: 0.125 MG
     Route: 048
  2. RISPERIDONE [Suspect]
     Dosage: 1 MG
     Route: 048
  3. CITALOPRAM HYDROBROMIDE [Suspect]
     Dosage: 40 MG
  4. QUETIAPINE [Suspect]
     Indication: AGGRESSION
  5. SULFAMETHOXAZOLE AND TRIMETHOPRIM [Suspect]
     Indication: EVIDENCE BASED TREATMENT
  6. MEMANTINE [Suspect]
     Dosage: 20 MG
  7. DONEPEZIL HCL [Suspect]
     Dosage: 10 MG
  8. LEVOTHYROXINE SODIUM [Suspect]
     Dosage: 150 MCG
  9. ATENOLOL [Suspect]
     Dosage: 12.5 MG
  10. ASPIRIN [Suspect]
     Dosage: 81 MG

REACTIONS (7)
  - ACUTE PRERENAL FAILURE [None]
  - ALANINE AMINOTRANSFERASE INCREASED [None]
  - ASPARTATE AMINOTRANSFERASE INCREASED [None]
  - BLOOD THYROID STIMULATING HORMONE INCREASED [None]
  - MUCOSAL DRYNESS [None]
  - SEROTONIN SYNDROME [None]
  - URINARY TRACT INFECTION [None]
